FAERS Safety Report 9203440 (Version 1)
Quarter: 2013Q2

REPORT INFORMATION
  Report Type: Report from Study
  Country: CA (occurrence: CA)
  Receive Date: 20130402
  Receipt Date: 20130402
  Transmission Date: 20140414
  Serious: Yes (Other)
  Sender: FDA-Public Use
  Company Number: CA-PFIZER INC-2013101700

PATIENT
  Age: 73 Year
  Sex: Male
  Weight: 65.8 kg

DRUGS (3)
  1. MORPHINE SULFATE [Suspect]
     Indication: PAIN
     Dosage: UNK
     Route: 065
  2. FENTANYL [Concomitant]
     Dosage: 75 MG (75UG/H), UNK
  3. TYLENOL W/CODEINE NO.3 [Concomitant]
     Dosage: UNK

REACTIONS (1)
  - Myocardial infarction [Recovered/Resolved]
